FAERS Safety Report 7367907-7 (Version None)
Quarter: 2011Q1

REPORT INFORMATION
  Report Type: 
  Country: None (occurrence: None)
  Receive Date: 20110322
  Receipt Date: 20110310
  Transmission Date: 20110831
  Serious: Yes (Death)
  Sender: FDA-Public Use
  Company Number: DE-AMGEN-DEUCT2011013783

PATIENT
  Age: 64 Year
  Sex: Male

DRUGS (1)
  1. DARBEPOETIN ALFA [Suspect]
     Indication: RENAL FAILURE CHRONIC
     Dosage: UNK UNK, Q2WK

REACTIONS (1)
  - DEATH [None]
